FAERS Safety Report 11771748 (Version 1)
Quarter: 2015Q4

REPORT INFORMATION
  Report Type: Spontaneous
  Country: BR (occurrence: BR)
  Receive Date: 20151124
  Receipt Date: 20151124
  Transmission Date: 20160304
  Serious: Yes (Other)
  Sender: FDA-Public Use
  Company Number: BR-SHIRE-BR201515268

PATIENT
  Age: 34 Year
  Sex: Female
  Weight: 83 kg

DRUGS (2)
  1. MESACOL MMX [Suspect]
     Active Substance: MESALAMINE
     Indication: COLITIS
     Dosage: 2400 MG (TWO 1200 MG TABLETS), 1X/DAY:QD
     Route: 048
     Dates: start: 20151104
  2. MESACOL                            /00747601/ [Suspect]
     Active Substance: MESALAMINE
     Indication: COLITIS
     Dosage: 250 MG, 1X/DAY:QD
     Route: 054
     Dates: start: 20151104

REACTIONS (7)
  - Abdominal pain [Unknown]
  - Headache [Unknown]
  - Haematochezia [Unknown]
  - Pyrexia [Unknown]
  - Pain [Unknown]
  - Underdose [Unknown]
  - Diarrhoea [Unknown]

NARRATIVE: CASE EVENT DATE: 20151105
